FAERS Safety Report 9126283 (Version 3)
Quarter: 2013Q3

REPORT INFORMATION
  Report Type: Spontaneous
  Country: US (occurrence: US)
  Receive Date: 20130117
  Receipt Date: 20130923
  Transmission Date: 20140515
  Serious: Yes (Hospitalization)
  Sender: FDA-Public Use
  Company Number: US-GLAXOSMITHKLINE-A1008724A

PATIENT
  Sex: Male

DRUGS (2)
  1. VALTREX [Suspect]
     Indication: GENITAL HERPES
     Dosage: 500MG PER DAY
     Route: 064
     Dates: start: 2005
  2. NO CONCURRENT MEDICATIONS [Concomitant]

REACTIONS (5)
  - Congenital anomaly [Unknown]
  - Speech disorder developmental [Not Recovered/Not Resolved]
  - Asthma [Not Recovered/Not Resolved]
  - Foetal exposure during pregnancy [Unknown]
  - Exposure during breast feeding [Unknown]
